FAERS Safety Report 21096032 (Version 1)
Quarter: 2022Q3

REPORT INFORMATION
  Report Type: Spontaneous
  Country: US (occurrence: US)
  Receive Date: 20220718
  Receipt Date: 20220718
  Transmission Date: 20221026
  Serious: No
  Sender: FDA-Public Use
  Company Number: US-MYLANLABS-2022M1035927

PATIENT
  Sex: Female

DRUGS (1)
  1. XULANE [Suspect]
     Active Substance: ETHINYL ESTRADIOL\NORELGESTROMIN
     Indication: Endometriosis
     Dosage: 150/35MCG PER DAY (ONCE EVERY THREE WEEKS)
     Route: 062
     Dates: start: 20220427

REACTIONS (2)
  - Off label use [Unknown]
  - Product adhesion issue [Unknown]
